FAERS Safety Report 4830551-7 (Version None)
Quarter: 2005Q4

REPORT INFORMATION
  Report Type: 
  Country: None (occurrence: None)
  Receive Date: 20051115
  Receipt Date: 20051019
  Transmission Date: 20060501
  Serious: Yes (Death)
  Sender: FDA-Public Use
  Company Number: 2005-CZ-00844

PATIENT
  Age: 61 Year
  Sex: Male

DRUGS (7)
  1. SALBUTAMOL AEROSOL INHALER BP 100 UG (SALBUTAMOL) [Suspect]
     Dosage: 200 2 PUFFS 4 TIMES DAILY, RESPIRATORY (INHALATION)
     Route: 055
  2. OMEPRAZOLE IVAX 20 MG, GELULE GASTRO-RESISTANTE (OMEPRAZOLE) [Suspect]
     Dosage: 20 MG  2 CAPSULE DAILY
  3. ACETYLSALICYLIC ACID [Suspect]
     Dosage: 75 MG
  4. TIOTROPIUM BROMIDE [Suspect]
     Dosage: 18 MCG, RESPIRATORY (INHALATION)
     Route: 055
  5. LEKOVIT CA [Suspect]
     Dosage: 2 IN 1 D
  6. SERETIDE [Suspect]
     Dosage: 250 2 PUFFS MORNING AND NIGHT
  7. TAMSULOSIN HYDROCHLORIDE [Suspect]
     Dosage: 400 MCG

REACTIONS (2)
  - ASBESTOSIS [None]
  - CHRONIC OBSTRUCTIVE PULMONARY DISEASE [None]
